FAERS Safety Report 14154561 (Version 1)
Quarter: 2017Q4

REPORT INFORMATION
  Report Type: Spontaneous
  Country: US (occurrence: US)
  Receive Date: 20171102
  Receipt Date: 20171102
  Transmission Date: 20180321
  Serious: Yes (Hospitalization, Other)
  Sender: FDA-Public Use
  Company Number: US-BAYER-2017-207625

PATIENT
  Sex: Female

DRUGS (16)
  1. LEVOFLOXACIN. [Concomitant]
     Active Substance: LEVOFLOXACIN
  2. SIMVASTATIN. [Concomitant]
     Active Substance: SIMVASTATIN
  3. CIPROFLOXACIN. [Concomitant]
     Active Substance: CIPROFLOXACIN
  4. CEPHALEXIN. [Concomitant]
     Active Substance: CEPHALEXIN
  5. CARBAMAZEPINE. [Concomitant]
     Active Substance: CARBAMAZEPINE
  6. OXYBUTYN [Concomitant]
  7. ACETAMINOPHEN W/OXYCODONE [Concomitant]
     Active Substance: ACETAMINOPHEN\OXYCODONE HYDROCHLORIDE
  8. TRAZODONE [Concomitant]
     Active Substance: TRAZODONE HYDROCHLORIDE
  9. KLOR-CON [Concomitant]
     Active Substance: POTASSIUM CHLORIDE
  10. FUROSEMIDE. [Concomitant]
     Active Substance: FUROSEMIDE
  11. BETASERON [Suspect]
     Active Substance: INTERFERON BETA-1B
     Indication: MULTIPLE SCLEROSIS
     Dosage: 0.25 MG, QOD
     Route: 058
  12. OMEPRAZOLE. [Concomitant]
     Active Substance: OMEPRAZOLE
  13. NITROFURANTOIN. [Concomitant]
     Active Substance: NITROFURANTOIN
  14. TAMSULOSIN [Concomitant]
     Active Substance: TAMSULOSIN
  15. ONDANSETRON [Concomitant]
     Active Substance: ONDANSETRON
  16. ZALEPLON. [Concomitant]
     Active Substance: ZALEPLON

REACTIONS (2)
  - Multiple sclerosis relapse [None]
  - Gait disturbance [None]
